FAERS Safety Report 7472028-9 (Version None)
Quarter: 2011Q2

REPORT INFORMATION
  Report Type: 
  Country: None (occurrence: None)
  Receive Date: 20110511
  Receipt Date: 20101015
  Transmission Date: 20111010
  Serious: No
  Sender: FDA-Public Use
  Company Number: A0887103A

PATIENT
  Sex: Female

DRUGS (2)
  1. TYKERB [Suspect]
     Indication: BREAST CANCER
     Dosage: 1000MG PER DAY
     Route: 048
  2. HERCEPTIN [Concomitant]

REACTIONS (5)
  - DIARRHOEA [None]
  - CONJUNCTIVAL DISORDER [None]
  - NASAL MUCOSAL DISORDER [None]
  - SKIN LESION [None]
  - RASH [None]
